FAERS Safety Report 21553219 (Version 1)
Quarter: 2022Q4

REPORT INFORMATION
  Report Type: Spontaneous
  Country: GB (occurrence: GB)
  Receive Date: 20221104
  Receipt Date: 20221104
  Transmission Date: 20230112
  Serious: Yes (Hospitalization, Other)
  Sender: FDA-Public Use
  Company Number: GB-MYLANLABS-2014SP001182

PATIENT
  Age: 60 Year
  Sex: Female
  Weight: 55.4 kg

DRUGS (18)
  1. CISPLATIN [Suspect]
     Active Substance: CISPLATIN
     Indication: Small cell lung cancer
     Dosage: 75 MILLIGRAM/SQ. METER, DURATION: 1 DAYS
     Route: 042
     Dates: start: 20131203, end: 20131203
  2. CISPLATIN [Suspect]
     Active Substance: CISPLATIN
     Indication: Non-small cell lung cancer
     Dosage: 75 MILLIGRAM/SQ. METER, DURATION: 1 DAYS
     Route: 042
     Dates: start: 20140114, end: 20140114
  3. CISPLATIN [Suspect]
     Active Substance: CISPLATIN
     Dosage: 75 MILLIGRAM/SQ. METER, DURATION: 1DAYS
     Route: 042
     Dates: start: 20131224, end: 20131224
  4. CISPLATIN [Suspect]
     Active Substance: CISPLATIN
     Dosage: 75 MILLIGRAM/SQ. METER, Q3W
     Route: 042
     Dates: start: 20140114
  5. HYDROXOCOBALAMIN HYDROCHLORIDE [Suspect]
     Active Substance: HYDROXOCOBALAMIN HYDROCHLORIDE
     Indication: Non-small cell lung cancer
     Dosage: 1000 MICROGRAM, DURATION: 1 DAYS, PRE CYCLE 1 AND 3
     Route: 030
     Dates: start: 20140114, end: 20140114
  6. HYDROXOCOBALAMIN HYDROCHLORIDE [Suspect]
     Active Substance: HYDROXOCOBALAMIN HYDROCHLORIDE
     Dosage: UNK, DURATION: 1 DAYS
     Route: 065
     Dates: start: 20131203, end: 20131203
  7. HYDROXOCOBALAMIN HYDROCHLORIDE [Suspect]
     Active Substance: HYDROXOCOBALAMIN HYDROCHLORIDE
     Dosage: UNK
     Route: 065
     Dates: start: 20131224
  8. PEMETREXED [Suspect]
     Active Substance: PEMETREXED
     Indication: Small cell lung cancer
     Dosage: 500 MILLIGRAM/SQ. METER,CYCLE, DURATION: 1 DAYS
     Route: 042
     Dates: start: 20131224, end: 20131224
  9. PEMETREXED [Suspect]
     Active Substance: PEMETREXED
     Indication: Non-small cell lung cancer
     Dosage: 500 MILLIGRAM/SQ. METER, Q3W (IV DRIP), DURATION: 1 DAYS
     Route: 041
     Dates: start: 20140114, end: 20140114
  10. PEMETREXED [Suspect]
     Active Substance: PEMETREXED
     Dosage: 500 MILLIGRAM/SQ. METER(IV DRIP), DURATION: 1 DAYS
     Route: 041
     Dates: start: 20140114, end: 20140114
  11. PEMETREXED [Suspect]
     Active Substance: PEMETREXED
     Dosage: 500 MILLIGRAM/SQ. METER,CYCLE, DURATION: 1 DAYS
     Route: 042
     Dates: start: 20131203, end: 20131203
  12. CYANOCOBALAMIN [Suspect]
     Active Substance: CYANOCOBALAMIN
     Indication: Small cell lung cancer
     Dosage: 1000 MICROGRAM, CYCLE, DURATION: 1 DAYS
     Route: 030
     Dates: start: 20140114, end: 20140114
  13. CYANOCOBALAMIN [Suspect]
     Active Substance: CYANOCOBALAMIN
     Indication: Non-small cell lung cancer
  14. APREPITANT [Concomitant]
     Active Substance: APREPITANT
     Indication: Non-small cell lung cancer
     Dosage: 125 MILLIGRAM
     Route: 048
     Dates: start: 20131203
  15. CYCLIZINE [Concomitant]
     Active Substance: CYCLIZINE
     Indication: Non-small cell lung cancer
     Dosage: 50 MILLIGRAM
     Route: 048
     Dates: start: 20131203
  16. DEXAMETHASONE [Concomitant]
     Active Substance: DEXAMETHASONE
     Indication: Non-small cell lung cancer
     Dosage: 8 MILLIGRAM DAILY; 4 MILLIGRAM, BID
     Route: 048
     Dates: start: 20131203
  17. LEUCOVORIN [Concomitant]
     Active Substance: LEUCOVORIN
     Indication: Non-small cell lung cancer
     Dosage: 400 MICROGRAM DAILY; 400 MICROGRAM, QD
     Route: 048
     Dates: start: 20131203
  18. ONDANSETRON [Concomitant]
     Active Substance: ONDANSETRON
     Indication: Non-small cell lung cancer
     Dosage: 8 MILLIGRAM
     Route: 048
     Dates: start: 20131203

REACTIONS (7)
  - Capillary leak syndrome [Recovered/Resolved]
  - Swelling face [Recovered/Resolved]
  - Chest discomfort [Recovered/Resolved]
  - Peripheral swelling [Recovered/Resolved]
  - Rash [Recovered/Resolved]
  - Nausea [Recovered/Resolved]
  - Vomiting [Recovered/Resolved]

NARRATIVE: CASE EVENT DATE: 20131203
